FAERS Safety Report 8223803-4 (Version None)
Quarter: 2012Q1

REPORT INFORMATION
  Report Type: 
  Country: None (occurrence: None)
  Receive Date: 20120321
  Receipt Date: 20120321
  Transmission Date: 20120608
  Serious: No
  Sender: FDA-Public Use
  Company Number: None

PATIENT
  Age: 43 Year
  Sex: Female
  Weight: 69.853 kg

DRUGS (3)
  1. PREDNISONE [Concomitant]
  2. ZONISAMIDE [Suspect]
     Indication: MIGRAINE
     Dosage: 50.0 MG
     Route: 048
     Dates: start: 20120306, end: 20120318
  3. ATENOLOL [Concomitant]

REACTIONS (5)
  - RASH ERYTHEMATOUS [None]
  - RASH PRURITIC [None]
  - ABDOMINAL PAIN UPPER [None]
  - RASH GENERALISED [None]
  - BURNING SENSATION [None]
